FAERS Safety Report 9688274 (Version 2)
Quarter: 2014Q2

REPORT INFORMATION
  Report Type: Spontaneous
  Country: US (occurrence: US)
  Receive Date: 20131114
  Receipt Date: 20140417
  Transmission Date: 20141212
  Serious: Yes (Other)
  Sender: FDA-Public Use
  Company Number: US-ASTRAZENECA-2013SE82242

PATIENT
  Age: 94 Year
  Sex: Female

DRUGS (1)
  1. NEXIUM [Suspect]
     Indication: GASTROOESOPHAGEAL REFLUX DISEASE
     Route: 048
     Dates: start: 2000, end: 201309

REACTIONS (9)
  - Cervical vertebral fracture [Recovered/Resolved]
  - Femur fracture [Recovered/Resolved]
  - Osteoporosis [Unknown]
  - Vitamin D deficiency [Unknown]
  - Kyphosis [Unknown]
  - Fatigue [Unknown]
  - Eructation [Unknown]
  - Malaise [Not Recovered/Not Resolved]
  - Drug ineffective [Unknown]
